FAERS Safety Report 10247479 (Version 1)
Quarter: 2014Q2

REPORT INFORMATION
  Report Type: Spontaneous
  Country: GB (occurrence: None)
  Receive Date: 20140617
  Receipt Date: 20140617
  Transmission Date: 20141212
  Serious: Yes (Hospitalization)
  Sender: FDA-Public Use
  Company Number: FK201402364

PATIENT
  Age: 63 Year
  Sex: Male

DRUGS (13)
  1. FLUDARABINE [Suspect]
     Indication: LYMPHOMA
     Route: 048
     Dates: start: 20130429
  2. CYCLOPHOSPHAMIDE [Suspect]
     Indication: LYMPHOMA
     Route: 048
     Dates: start: 20130429
  3. RITUXIMAB [Suspect]
  4. RHUPH20 [Suspect]
     Indication: LYMPHOMA
     Route: 058
     Dates: start: 20130528
  5. ACICLOVIR (ACICLOVIR) [Concomitant]
  6. ALLOPURINOL (ALLOPURINOL) [Concomitant]
  7. CHLORPHENIRAMINE (CHLORPHENAMINE) [Concomitant]
  8. CO-TRIMOXAZOLE (CO-TRIMOXAZOLE) [Concomitant]
  9. DEXAMETHASONE (DEXAMETHASONE) [Concomitant]
  10. HYDROCORTISONE (HYDROCORTISONE) [Concomitant]
  11. METOCLOPRAMIDE (METOCLOPRAMIDE) [Concomitant]
  12. ONDANSETRON (ONDANSETRON) [Concomitant]
  13. PARACETAMOL (PARACETAMOL) [Concomitant]

REACTIONS (1)
  - Injection site cellulitis [None]
